FAERS Safety Report 9732899 (Version 1)
Quarter: 2013Q4

REPORT INFORMATION
  Report Type: Spontaneous
  Country: US (occurrence: US)
  Receive Date: 20131205
  Receipt Date: 20131205
  Transmission Date: 20140711
  Serious: Yes (Hospitalization, Other)
  Sender: FDA-Public Use
  Company Number: US-PFIZER INC-2013342643

PATIENT
  Age: 72 Year
  Sex: Male

DRUGS (3)
  1. ENBREL [Suspect]
     Indication: RHEUMATOID ARTHRITIS
     Dosage: 50 MG, QWK
     Route: 065
  2. ARTHROTEC [Suspect]
     Indication: PRODUCT USED FOR UNKNOWN INDICATION
     Dosage: UNK
     Route: 065
  3. ORENCIA [Suspect]
     Indication: PRODUCT USED FOR UNKNOWN INDICATION
     Dosage: UNK
     Route: 065

REACTIONS (11)
  - Constipation [Unknown]
  - Parkinsonism [Not Recovered/Not Resolved]
  - Weight decreased [Not Recovered/Not Resolved]
  - Urinary tract infection staphylococcal [Unknown]
  - Neck pain [Not Recovered/Not Resolved]
  - Toothache [Unknown]
  - Dental caries [Unknown]
  - Pain [Recovered/Resolved]
  - Feeling abnormal [Unknown]
  - Herpes zoster [Recovered/Resolved]
  - Injection site pain [Not Recovered/Not Resolved]
